FAERS Safety Report 10623510 (Version 5)
Quarter: 2015Q2

REPORT INFORMATION
  Report Type: Report from Study
  Country: US (occurrence: US)
  Receive Date: 20141203
  Receipt Date: 20150427
  Transmission Date: 20150821
  Serious: Yes (Other)
  Sender: FDA-Public Use
  Company Number: US-SA-2014SA105914

PATIENT
  Age: 56 Year
  Sex: Female

DRUGS (2)
  1. AUBAGIO [Suspect]
     Active Substance: TERIFLUNOMIDE
     Indication: MULTIPLE SCLEROSIS
     Route: 048
     Dates: start: 20140717, end: 20140725
  2. AUBAGIO [Suspect]
     Active Substance: TERIFLUNOMIDE
     Indication: MULTIPLE SCLEROSIS
     Route: 048
     Dates: start: 20140925, end: 20150129

REACTIONS (18)
  - Bronchitis [Unknown]
  - Migraine [Unknown]
  - Drug ineffective [Unknown]
  - Cough [Recovering/Resolving]
  - Diarrhoea [Recovering/Resolving]
  - Insomnia [Unknown]
  - Vision blurred [Unknown]
  - Memory impairment [Unknown]
  - Pneumonia [Unknown]
  - Spinal cord haematoma [Unknown]
  - Nasopharyngitis [Unknown]
  - Hypertension [Unknown]
  - Hypotension [Unknown]
  - Vomiting [Recovering/Resolving]
  - Tuberculosis [Recovering/Resolving]
  - Sinusitis [Unknown]
  - Dyspnoea [Unknown]
  - Nasal congestion [Unknown]

NARRATIVE: CASE EVENT DATE: 201407
